FAERS Safety Report 22524392 (Version 1)
Quarter: 2023Q2

REPORT INFORMATION
  Report Type: Spontaneous
  Country: US (occurrence: US)
  Receive Date: 20230606
  Receipt Date: 20230606
  Transmission Date: 20230721
  Serious: Yes (Other)
  Sender: FDA-Public Use
  Company Number: US-AUROBINDO-AUR-APL-2023-040215

PATIENT
  Age: 36 Year
  Sex: Male

DRUGS (1)
  1. PILOCARPINE HYDROCHLORIDE [Suspect]
     Active Substance: PILOCARPINE HYDROCHLORIDE
     Indication: Dry mouth
     Dosage: UNK
     Route: 048

REACTIONS (5)
  - Hyperhidrosis [Unknown]
  - Lacrimation increased [Unknown]
  - Miosis [Unknown]
  - Atrioventricular block complete [Recovered/Resolved]
  - Toxicity to various agents [Unknown]
